FAERS Safety Report 9632345 (Version 1)
Quarter: 2013Q4

REPORT INFORMATION
  Report Type: Spontaneous
  Country: TW (occurrence: None)
  Receive Date: 20131016
  Receipt Date: 20131016
  Transmission Date: 20140711
  Serious: Yes (Hospitalization)
  Sender: FDA-Public Use
  Company Number: SYM-2013-11565

PATIENT
  Age: 68 Year
  Sex: Female

DRUGS (6)
  1. 5 FU [Suspect]
     Indication: COLORECTAL CANCER METASTATIC
     Route: 040
     Dates: start: 20130826, end: 20130826
  2. PLACEBO [Suspect]
     Indication: COLORECTAL CANCER METASTATIC
     Route: 042
     Dates: start: 20130826, end: 20130826
  3. IRINOTECAN [Suspect]
     Indication: COLORECTAL CANCER METASTATIC
     Route: 042
     Dates: start: 20130826, end: 20130826
  4. LEUCOVORIN [Suspect]
     Indication: COLORECTAL CANCER METASTATIC
     Route: 042
     Dates: start: 20130826, end: 20130826
  5. STILNOX (ZOLPIDEM TARTRATE) [Concomitant]
  6. TRAZODONE HYDROCHLORIDE [Concomitant]

REACTIONS (2)
  - Hyperammonaemia [None]
  - Vaginal fistula [None]
